FAERS Safety Report 19355192 (Version 2)
Quarter: 2021Q2

REPORT INFORMATION
  Report Type: Spontaneous
  Country: US (occurrence: US)
  Receive Date: 20210602
  Receipt Date: 20210618
  Transmission Date: 20210717
  Serious: No
  Sender: FDA-Public Use
  Company Number: US-STRONGBRIDGE BIOPHARMA-2021-STR-000186

PATIENT
  Age: 19 Year
  Sex: Male

DRUGS (2)
  1. KEVEYIS [Suspect]
     Active Substance: DICHLORPHENAMIDE
     Indication: FAMILIAL PERIODIC PARALYSIS
     Dosage: UNK
     Dates: start: 20210520
  2. KEVEYIS [Suspect]
     Active Substance: DICHLORPHENAMIDE
     Dosage: 50 MG, QD
     Route: 048
     Dates: start: 20210521

REACTIONS (4)
  - Hypoaesthesia [Recovered/Resolved]
  - Prescription drug used without a prescription [Unknown]
  - Paraesthesia [Recovered/Resolved]
  - Muscle discomfort [Unknown]

NARRATIVE: CASE EVENT DATE: 20210521
